FAERS Safety Report 18017732 (Version 1)
Quarter: 2020Q3

REPORT INFORMATION
  Report Type: Other
  Country: GR (occurrence: GR)
  Receive Date: 20200713
  Receipt Date: 20200713
  Transmission Date: 20201103
  Serious: Yes (Other)
  Sender: FDA-Public Use
  Company Number: GR-ROCHE-2630336

PATIENT
  Age: 68 Year
  Sex: Male
  Weight: 100 kg

DRUGS (11)
  1. ENOXAPARIN [Concomitant]
     Active Substance: ENOXAPARIN
  2. CLARITHROMYCIN. [Concomitant]
     Active Substance: CLARITHROMYCIN
  3. ANAKINRA [Concomitant]
     Active Substance: ANAKINRA
  4. MEROPENEM. [Concomitant]
     Active Substance: MEROPENEM
  5. TOCILIZUMAB. [Suspect]
     Active Substance: TOCILIZUMAB
     Indication: COVID-19
     Route: 042
  6. ACTILYSE [Suspect]
     Active Substance: ALTEPLASE
     Indication: ISCHAEMIA
     Dosage: OVER 22 HOURS
     Route: 042
  7. AZITHROMYCIN ANHYDROUS. [Concomitant]
     Active Substance: AZITHROMYCIN ANHYDROUS
  8. HYDROXYCHLOROQUINE [Concomitant]
     Active Substance: HYDROXYCHLOROQUINE
  9. ACTILYSE [Suspect]
     Active Substance: ALTEPLASE
     Indication: COVID-19
     Dosage: OVER 2 HOURS
     Route: 042
  10. OSELTAMIVIR [Concomitant]
     Active Substance: OSELTAMIVIR
  11. HEPARIN [Concomitant]
     Active Substance: HEPARIN SODIUM

REACTIONS (3)
  - Intentional product use issue [Unknown]
  - Neutropenia [Recovered/Resolved]
  - Off label use [Unknown]
